FAERS Safety Report 18989014 (Version 1)
Quarter: 2021Q1

REPORT INFORMATION
  Report Type: Spontaneous
  Country: ES (occurrence: ES)
  Receive Date: 20210309
  Receipt Date: 20210309
  Transmission Date: 20210420
  Serious: Yes (Other)
  Sender: FDA-Public Use
  Company Number: ES-AUROBINDO-AUR-APL-2021-009321

PATIENT
  Age: 23 Year
  Sex: Female

DRUGS (3)
  1. AMPHOTERICINE B [Suspect]
     Active Substance: AMPHOTERICIN B
     Indication: VISCERAL LEISHMANIASIS
     Dosage: UNK
     Route: 065
  2. MEGLUMINE ANTIMONATE [Concomitant]
     Active Substance: MEGLUMINE ANTIMONIATE
     Indication: VISCERAL LEISHMANIASIS
     Dosage: 20 MILLIGRAM/KILOGRAM/DAY
     Route: 030
  3. AMOXICILLIN+CLAVULANIC ACID [Suspect]
     Active Substance: AMOXICILLIN\CLAVULANIC ACID
     Indication: SKIN INJURY
     Dosage: UNK
     Route: 065

REACTIONS (2)
  - Drug ineffective [Unknown]
  - Anaphylactic reaction [Unknown]
